FAERS Safety Report 11114750 (Version 1)
Quarter: 2015Q2

REPORT INFORMATION
  Report Type: Spontaneous
  Country: IR (occurrence: None)
  Receive Date: 20150513
  Receipt Date: 20150513
  Transmission Date: 20150821
  Serious: Yes (Other)
  Sender: FDA-Public Use
  Company Number: BD-2015-0299

PATIENT
  Sex: Female

DRUGS (5)
  1. VITAMIN B6 [Concomitant]
     Active Substance: PYRIDOXINE HYDROCHLORIDE
  2. METOCLOPRAMIDE (METOCLOPRAMIDE) INJECTION, 5MG/ML [Suspect]
     Active Substance: METOCLOPRAMIDE
     Indication: VOMITING IN PREGNANCY
  3. ONDANSETRON (ONDANSETRON) UNKNOWN [Suspect]
     Active Substance: ONDANSETRON
     Indication: VOMITING IN PREGNANCY
  4. PROMETHAZINE [Concomitant]
     Active Substance: PROMETHAZINE\PROMETHAZINE HYDROCHLORIDE
  5. ANTIHISTAMINES [Concomitant]
     Active Substance: ANTIHISTAMINES NOS

REACTIONS (3)
  - Maternal drugs affecting foetus [None]
  - Abortion spontaneous [None]
  - Maternal exposure during pregnancy [None]
